FAERS Safety Report 17625384 (Version 2)
Quarter: 2025Q2

REPORT INFORMATION
  Report Type: Report from Study
  Country: DE (occurrence: DE)
  Receive Date: 20200403
  Receipt Date: 20250401
  Transmission Date: 20250716
  Serious: Yes (Congenital Anomaly, Other)
  Sender: AUROBINDO
  Company Number: DE-TEVA-2020-DE-1203962

PATIENT

DRUGS (1)
  1. RAMIPRIL [Suspect]
     Active Substance: RAMIPRIL
     Indication: Product used for unknown indication
     Route: 064

REACTIONS (4)
  - Congenital renal disorder [Unknown]
  - Angiotensin converting enzyme inhibitor foetopathy [Unknown]
  - Oliguria [Unknown]
  - Foetal exposure during pregnancy [Unknown]
